FAERS Safety Report 6642521-7 (Version None)
Quarter: 2010Q1

REPORT INFORMATION
  Report Type: 
  Country: None (occurrence: None)
  Receive Date: 20100316
  Receipt Date: 20100309
  Transmission Date: 20100710
  Serious: Yes (Death)
  Sender: FDA-Public Use
  Company Number: 2010JP001420

PATIENT

DRUGS (1)
  1. FUNGUARD (MICAFUNGIN) INJECTION [Suspect]
     Dosage: IV NOS
     Route: 042

REACTIONS (1)
  - DEATH [None]
